FAERS Safety Report 5896904-3 (Version None)
Quarter: 2008Q3

REPORT INFORMATION
  Report Type: 
  Country: None (occurrence: None)
  Receive Date: 20080924
  Receipt Date: 20080912
  Transmission Date: 20090109
  Serious: Yes (Other)
  Sender: FDA-Public Use
  Company Number: BR-PFIZER INC-2008078563

PATIENT
  Sex: Male
  Weight: 11 kg

DRUGS (2)
  1. PHENYTOIN SODIUM [Suspect]
     Indication: HEAD INJURY
     Route: 048
     Dates: start: 20080618
  2. LORATADINE W/PSEUDOEPHEDRINE [Suspect]
     Indication: HYPERSENSITIVITY
     Dates: start: 20080910, end: 20080911

REACTIONS (4)
  - HALLUCINATION [None]
  - HYPERSENSITIVITY [None]
  - PALLOR [None]
  - SOMNOLENCE [None]
